FAERS Safety Report 23572666 (Version 2)
Quarter: 2024Q3

REPORT INFORMATION
  Report Type: Spontaneous
  Country: US (occurrence: US)
  Receive Date: 20240227
  Receipt Date: 20240822
  Transmission Date: 20241017
  Serious: No
  Sender: AVADEL CNS PHARMA
  Company Number: US-AVADEL CNS PHARMACEUTICALS, LLC-2023AVA00573

PATIENT
  Age: 50 Year
  Sex: Female
  Weight: 115.19 kg

DRUGS (15)
  1. LUMRYZ [Suspect]
     Active Substance: SODIUM OXYBATE
     Indication: Narcolepsy
     Dosage: 6 G, ONCE NIGHTLY
     Route: 048
     Dates: start: 20231202
  2. LUMRYZ [Suspect]
     Active Substance: SODIUM OXYBATE
     Indication: Narcolepsy
     Dosage: 7.5 G, ONCE NIGHTLY
     Route: 048
     Dates: start: 20231206
  3. LUMRYZ [Suspect]
     Active Substance: SODIUM OXYBATE
     Dosage: 7.5 G, ONCE NIGHTLY
     Route: 048
     Dates: end: 20240415
  4. CETIRIZINE HCL [Concomitant]
     Active Substance: CETIRIZINE HYDROCHLORIDE
     Dosage: 10 MG, 1X/DAY
  5. ADVAIR HFA [Concomitant]
     Active Substance: FLUTICASONE PROPIONATE\SALMETEROL XINAFOATE
     Dosage: UNK, ONCE OR TWICE DAILY (SHE IS SUPPOSED TO TAKE TWICE DAILY AND DOES SO OCCASSIONALLY)
  6. SUNOSI [Concomitant]
     Active Substance: SOLRIAMFETOL
     Dosage: 150 MG, 1X/DAY
  7. PANTOPRAZOLE SODIUM ANHYDROUS [Concomitant]
     Active Substance: PANTOPRAZOLE SODIUM ANHYDROUS
     Dosage: 40 MG, 1X/DAY
  8. DULOXETINE HYDROCHLORIDE [Concomitant]
     Active Substance: DULOXETINE HYDROCHLORIDE
     Dosage: 40 MG, 1X/DAY IN THE MORNING
  9. BUSPIRONE HCL [Concomitant]
     Active Substance: BUSPIRONE HYDROCHLORIDE
     Dosage: 30 MG IN THE MORNING AND 15 MG IN THE EVENING
  10. ATOMOXETINE HYDROCHLORIDE [Concomitant]
     Active Substance: ATOMOXETINE HYDROCHLORIDE
     Dosage: 80 MG, 1X/DAY
  11. FLUOXETINE HYDROCHLORIDE [Concomitant]
     Active Substance: FLUOXETINE HYDROCHLORIDE
     Dosage: 40 MG, 1X/DAY
  12. VITAMIN D3 [Concomitant]
     Active Substance: CHOLECALCIFEROL
     Dosage: UNK
  13. MINERALS\VITAMINS [Concomitant]
     Active Substance: MINERALS\VITAMINS
     Dosage: UNK, 1X/DAY
  14. ALBUTEROL SULFATE [Concomitant]
     Active Substance: ALBUTEROL SULFATE
     Dosage: UNK, AS NEEDED
  15. ARMODAFINIL [Concomitant]
     Active Substance: ARMODAFINIL
     Dosage: UNK

REACTIONS (21)
  - Tachyphrenia [Not Recovered/Not Resolved]
  - Initial insomnia [Not Recovered/Not Resolved]
  - Middle insomnia [Not Recovered/Not Resolved]
  - Insomnia [Unknown]
  - Fatigue [Not Recovered/Not Resolved]
  - Hypersomnia [Not Recovered/Not Resolved]
  - Poor quality sleep [Unknown]
  - Gingival recession [Recovering/Resolving]
  - Tooth disorder [Unknown]
  - Dental caries [Unknown]
  - Gingival discolouration [Recovered/Resolved]
  - Tooth fracture [Recovered/Resolved]
  - Tooth loss [Recovered/Resolved]
  - Dental discomfort [Recovering/Resolving]
  - Oral pain [Recovering/Resolving]
  - Performance status decreased [Unknown]
  - Sluggishness [Not Recovered/Not Resolved]
  - Somnolence [Recovering/Resolving]
  - Therapeutic product effect delayed [Recovered/Resolved]
  - Drug ineffective [Recovered/Resolved]
  - Intentional dose omission [Recovered/Resolved]

NARRATIVE: CASE EVENT DATE: 20231201
